FAERS Safety Report 7138481-5 (Version None)
Quarter: 2010Q4

REPORT INFORMATION
  Report Type: 
  Country: None (occurrence: None)
  Receive Date: 20101206
  Receipt Date: 20101129
  Transmission Date: 20110411
  Serious: Yes (Other)
  Sender: FDA-Public Use
  Company Number: NO-PFIZER INC-2010160163

PATIENT
  Age: 64 Year
  Sex: Male

DRUGS (4)
  1. SUTENT [Suspect]
     Indication: RENAL CANCER METASTATIC
     Dosage: 50 MG, TWO CYCLES (4 WEEKS ON, 2 WEEKS OFF)
     Dates: start: 20061001
  2. SUTENT [Suspect]
     Dosage: 50 MG, 1 CYCLE (4 WEEKS ON, TWO WEEKS OFF)
     Dates: start: 20071201
  3. SUTENT [Suspect]
     Dosage: 37.5 MG, NUMBER OF CYCLUSES (4 WEEKS ON, 2 WEEKS OFF)
     Dates: start: 20080101
  4. SUTENT [Suspect]
     Dosage: 25 MG/DAY (TOTALLY 16 CYCLUSES, LAST ONE STARTED MAY2009)
     Dates: start: 20080501, end: 20090601

REACTIONS (4)
  - ACUTE MYOCARDIAL INFARCTION [None]
  - DISEASE PROGRESSION [None]
  - POLYCYTHAEMIA [None]
  - RENAL CANCER METASTATIC [None]
